FAERS Safety Report 11092913 (Version 1)
Quarter: 2015Q2

REPORT INFORMATION
  Report Type: Spontaneous
  Country: US (occurrence: US)
  Receive Date: 20150506
  Receipt Date: 20150506
  Transmission Date: 20150821
  Serious: Yes (Hospitalization, Other)
  Sender: FDA-Public Use
  Company Number: US-ELI_LILLY_AND_COMPANY-US201504010526

PATIENT
  Age: 23 Year
  Sex: Female
  Weight: 60.32 kg

DRUGS (2)
  1. HUMALOG [Suspect]
     Active Substance: INSULIN LISPRO
     Indication: PRODUCT USED FOR UNKNOWN INDICATION
     Route: 065
  2. NOVOLOG [Suspect]
     Active Substance: INSULIN ASPART
     Indication: PRODUCT USED FOR UNKNOWN INDICATION
     Route: 065

REACTIONS (9)
  - Diabetic ketoacidosis [Unknown]
  - Vomiting [Unknown]
  - Hypopnoea [Unknown]
  - Nausea [Unknown]
  - Blood glucose increased [Unknown]
  - Blood glucose increased [Unknown]
  - Abdominal pain upper [Unknown]
  - Heart rate increased [Unknown]
  - Pain [Unknown]

NARRATIVE: CASE EVENT DATE: 20150426
